FAERS Safety Report 8377326-2 (Version None)
Quarter: 2012Q2

REPORT INFORMATION
  Report Type: 
  Country: None (occurrence: None)
  Receive Date: 20120522
  Receipt Date: 20120516
  Transmission Date: 20120825
  Serious: Yes (Hospitalization)
  Sender: FDA-Public Use
  Company Number: EG-ALLERGAN-1207003US

PATIENT
  Age: 38 Year
  Sex: Female
  Weight: 68 kg

DRUGS (2)
  1. BOTULINUM TOXIN TYPE A [Suspect]
     Indication: SKIN WRINKLING
     Dosage: 52 UNITS, SINGLE
     Route: 030
  2. MINOXIDIL [Concomitant]
     Indication: HAIR GROWTH ABNORMAL
     Dosage: UNK
     Dates: end: 20120516

REACTIONS (2)
  - TACHYCARDIA [None]
  - HYPOTENSION [None]
